FAERS Safety Report 5697749-X (Version None)
Quarter: 2008Q2

REPORT INFORMATION
  Report Type: 
  Country: None (occurrence: None)
  Receive Date: 20080408
  Receipt Date: 20080403
  Transmission Date: 20081010
  Serious: Yes (Death, Hospitalization, Other)
  Sender: FDA-Public Use
  Company Number: AU-AVENTIS-200810937GDDC

PATIENT
  Age: 66 Year
  Sex: Female

DRUGS (10)
  1. LANTUS [Suspect]
     Route: 058
     Dates: start: 20060901, end: 20071118
  2. AUTOPEN INSULIN INJECTION PEN [Suspect]
  3. ACTRAPID [Concomitant]
  4. ACTRAPID [Concomitant]
  5. ATACAND [Concomitant]
  6. EDRONAX                            /01350601/ [Concomitant]
  7. PANAMAX [Concomitant]
     Dosage: DOSE QUANTITY: 2
  8. PANTOPRAZOLE SODIUM [Concomitant]
  9. ZANTAC [Concomitant]
  10. ZOCOR [Concomitant]

REACTIONS (3)
  - ENDOCARDITIS [None]
  - GASTRIC ULCER HAEMORRHAGE [None]
  - MYOCARDIAL INFARCTION [None]
